FAERS Safety Report 8222870-1 (Version None)
Quarter: 2012Q1

REPORT INFORMATION
  Report Type: 
  Country: None (occurrence: None)
  Receive Date: 20120320
  Receipt Date: 20120319
  Transmission Date: 20120608
  Serious: Yes (Death)
  Sender: FDA-Public Use
  Company Number: US-PFIZER INC-2012071769

PATIENT
  Sex: Male
  Weight: 56.689 kg

DRUGS (2)
  1. CHANTIX [Suspect]
     Route: 048
  2. CHANTIX [Suspect]
     Indication: SMOKING CESSATION THERAPY
     Dosage: 0.5 MG, 1X/DAY
     Route: 048

REACTIONS (3)
  - CHRONIC OBSTRUCTIVE PULMONARY DISEASE [None]
  - ABNORMAL DREAMS [None]
  - DRUG INEFFECTIVE [None]
